FAERS Safety Report 5495390-5 (Version None)
Quarter: 2007Q4

REPORT INFORMATION
  Report Type: 
  Country: None (occurrence: None)
  Receive Date: 20071024
  Receipt Date: 20071012
  Transmission Date: 20080405
  Serious: Yes (Other)
  Sender: FDA-Public Use
  Company Number: US-PFIZER INC-2007087802

PATIENT
  Sex: Female
  Weight: 127.27 kg

DRUGS (9)
  1. CHANTIX [Suspect]
     Indication: EX-SMOKER
     Dates: start: 20070101, end: 20070101
  2. ATENOLOL [Concomitant]
  3. POTASSIUM CHLORIDE [Concomitant]
  4. LIPITOR [Concomitant]
  5. KADIAN ^KNOLL^ [Concomitant]
  6. VICODIN [Concomitant]
  7. FLEXERIL [Concomitant]
  8. EFFEXOR [Concomitant]
  9. NEURONTIN [Concomitant]

REACTIONS (2)
  - ALOPECIA [None]
  - SPINAL DISORDER [None]
